FAERS Safety Report 16954627 (Version 2)
Quarter: 2019Q4

REPORT INFORMATION
  Report Type: Report from Study
  Country: FR (occurrence: FR)
  Receive Date: 20191024
  Receipt Date: 20191204
  Transmission Date: 20200122
  Serious: Yes (Life-Threatening, Hospitalization)
  Sender: FDA-Public Use
  Company Number: FR-ROCHE-2447221

PATIENT
  Age: 64 Year
  Sex: Male

DRUGS (11)
  1. VISMED [Concomitant]
     Active Substance: HYALURONATE SODIUM
  2. VITAMIN A [RETINOL] [Concomitant]
     Active Substance: RETINOL
  3. CISPLATIN. [Suspect]
     Active Substance: CISPLATIN
     Indication: ANAL CANCER
     Dosage: DATE OF MOST RECENT DOSE : 05/SEP/2019
     Route: 042
     Dates: start: 20190613
  4. DACRYOSERUM [BORIC ACID;SODIUM BORATE] [Concomitant]
  5. EMEND [Concomitant]
     Active Substance: APREPITANT
  6. FORLAX [MACROGOL 4000] [Concomitant]
     Active Substance: POLYETHYLENE GLYCOL 4000
  7. ATEZOLIZUMAB. [Suspect]
     Active Substance: ATEZOLIZUMAB
     Indication: ANAL CANCER
     Dosage: DATE OF MOST RECENT DOSE : 05/SEP/2019
     Route: 042
     Dates: start: 20190613
  8. ZOPICLONE [Concomitant]
     Active Substance: ZOPICLONE
  9. 5-FLUOROURACIL [FLUOROURACIL] [Suspect]
     Active Substance: FLUOROURACIL
     Indication: ANAL CANCER
     Dosage: DATE OF MOST RECENT DOSE : 05/SEP/2019
     Route: 042
     Dates: start: 20190613
  10. ZOPHREN [ONDANSETRON] [Concomitant]
     Active Substance: ONDANSETRON
     Route: 065
  11. DOCETAXEL. [Suspect]
     Active Substance: DOCETAXEL
     Indication: ANAL CANCER
     Dosage: DATE OF MOST RECENT DOSE : 05/SEP/2019
     Route: 042
     Dates: start: 20190613

REACTIONS (1)
  - Thrombocytopenia [Recovered/Resolved]

NARRATIVE: CASE EVENT DATE: 20190916
